FAERS Safety Report 4433591-5 (Version None)
Quarter: 2004Q3

REPORT INFORMATION
  Report Type: 
  Country: None (occurrence: None)
  Receive Date: 20040826
  Receipt Date: 20040817
  Transmission Date: 20050211
  Serious: Yes (Other)
  Sender: FDA-Public Use
  Company Number: US-JNJFOC-20040806095

PATIENT
  Sex: Female

DRUGS (3)
  1. DURAGESIC [Suspect]
     Route: 062
  2. DURAGESIC [Suspect]
     Route: 062
  3. DURAGESIC [Suspect]
     Route: 062

REACTIONS (24)
  - AMNESIA [None]
  - ANOREXIA [None]
  - BLOOD PRESSURE FLUCTUATION [None]
  - BONE PAIN [None]
  - CHILLS [None]
  - DEPRESSION [None]
  - DIARRHOEA [None]
  - DYSPNOEA [None]
  - FAECAL INCONTINENCE [None]
  - HEAD INJURY [None]
  - HEADACHE [None]
  - HYPERHIDROSIS [None]
  - LABILE BLOOD PRESSURE [None]
  - LACERATION [None]
  - LOSS OF CONSCIOUSNESS [None]
  - MALAISE [None]
  - MEDICATION ERROR [None]
  - MEMORY IMPAIRMENT [None]
  - OEDEMA PERIPHERAL [None]
  - PAIN OF SKIN [None]
  - SUICIDAL IDEATION [None]
  - URINARY INCONTINENCE [None]
  - VOMITING [None]
  - WEIGHT DECREASED [None]
